FAERS Safety Report 14364081 (Version 2)
Quarter: 2018Q2

REPORT INFORMATION
  Report Type: Report from Study
  Country: US (occurrence: US)
  Receive Date: 20180108
  Receipt Date: 20180521
  Transmission Date: 20180711
  Serious: Yes (Death)
  Sender: FDA-Public Use
  Company Number: US-OTSUKA-2018_000376

PATIENT
  Age: 69 Year
  Sex: Male

DRUGS (2)
  1. TOLVAPTAN [Suspect]
     Active Substance: TOLVAPTAN
     Indication: HYPONATRAEMIA
     Dosage: UNK (STRENGTH: 15 MG) , TAKE 1 TABLET ON SUNDAY
     Route: 048
     Dates: start: 20171204
  2. TOLVAPTAN [Suspect]
     Active Substance: TOLVAPTAN
     Indication: BLOOD OSMOLARITY DECREASED

REACTIONS (4)
  - Underdose [Unknown]
  - Wrong technique in product usage process [Unknown]
  - Inappropriate schedule of drug administration [Unknown]
  - Respiratory failure [Fatal]

NARRATIVE: CASE EVENT DATE: 20171204
